FAERS Safety Report 7480811-9 (Version None)
Quarter: 2011Q2

REPORT INFORMATION
  Report Type: 
  Country: None (occurrence: None)
  Receive Date: 20110516
  Receipt Date: 20110506
  Transmission Date: 20111010
  Serious: Yes (Death)
  Sender: FDA-Public Use
  Company Number: US-TYCO HEALTHCARE/MALLINCKRODT-T201100888

PATIENT
  Age: 14 Year
  Sex: Female

DRUGS (1)
  1. TOFRANIL-PM [Suspect]
     Dosage: 14.5 MG/KG/DAY

REACTIONS (1)
  - DEATH [None]
